FAERS Safety Report 7884418-0 (Version None)
Quarter: 2011Q4

REPORT INFORMATION
  Report Type: 
  Country: None (occurrence: None)
  Receive Date: 20111102
  Receipt Date: 20110915
  Transmission Date: 20120403
  Serious: No
  Sender: FDA-Public Use
  Company Number: US-ASTRAZENECA-2011SE48570

PATIENT
  Age: 65 Year
  Sex: Male

DRUGS (8)
  1. PLAVIX [Concomitant]
  2. SIMVASTATIN [Concomitant]
  3. QUINAPRIL HCL [Concomitant]
  4. ACTOS [Concomitant]
  5. VANDETANIB [Suspect]
     Indication: THYROID CANCER
     Route: 048
  6. LEVOTHYROXINE SODIUM [Concomitant]
  7. INSULIN HUMAN [Concomitant]
  8. METOPROLOL TARTRATE [Concomitant]

REACTIONS (5)
  - DRY MOUTH [None]
  - EPISTAXIS [None]
  - DYSPNOEA AT REST [None]
  - OROPHARYNGEAL PAIN [None]
  - COUGH [None]
